FAERS Safety Report 6717791-7 (Version None)
Quarter: 2010Q2

REPORT INFORMATION
  Report Type: 
  Country: None (occurrence: None)
  Receive Date: 20100510
  Receipt Date: 20100430
  Transmission Date: 20101027
  Serious: Yes (Other)
  Sender: FDA-Public Use
  Company Number: IE-PFIZER INC-2010055205

PATIENT
  Sex: Male

DRUGS (1)
  1. LYRICA [Suspect]
     Indication: BACK PAIN
     Dosage: 150 MG, 2X/DAY

REACTIONS (1)
  - WITHDRAWAL SYNDROME [None]
